FAERS Safety Report 8076195-8 (Version None)
Quarter: 2012Q1

REPORT INFORMATION
  Report Type: 
  Country: None (occurrence: None)
  Receive Date: 20120127
  Receipt Date: 20120123
  Transmission Date: 20120608
  Serious: Yes (Death)
  Sender: FDA-Public Use
  Company Number: SE-SANOFI-AVENTIS-2012SA004523

PATIENT
  Age: 72 Year
  Sex: Female

DRUGS (2)
  1. ENALAPRIL MALEATE [Suspect]
     Route: 065
     Dates: start: 20110801, end: 20110801
  2. CLOPIDOGREL BISULFATE [Suspect]
     Route: 048
     Dates: start: 20110801, end: 20110801

REACTIONS (2)
  - HYPOTENSION [None]
  - CEREBROVASCULAR DISORDER [None]
